FAERS Safety Report 8463847-0 (Version None)
Quarter: 2012Q2

REPORT INFORMATION
  Report Type: 
  Country: None (occurrence: None)
  Receive Date: 20120323
  Receipt Date: 20111216
  Transmission Date: 20120825
  Serious: Yes (Hospitalization)
  Sender: FDA-Public Use
  Company Number: 163-21880-11111294

PATIENT
  Age: 52 Year
  Sex: Female

DRUGS (2)
  1. REVLIMID [Suspect]
     Indication: MULTIPLE MYELOMA
     Dosage: 25 MG, DAILY X 14 DAYS, 1 WEEK OFF, PO ; 10 MG, 1 IN 1 D, PO
     Route: 048
     Dates: start: 20110815, end: 20110825
  2. REVLIMID [Suspect]
     Indication: MULTIPLE MYELOMA
     Dosage: 25 MG, DAILY X 14 DAYS, 1 WEEK OFF, PO ; 10 MG, 1 IN 1 D, PO
     Route: 048
     Dates: start: 20111111

REACTIONS (3)
  - ARTHRALGIA [None]
  - RENAL FAILURE ACUTE [None]
  - BACK PAIN [None]
